FAERS Safety Report 9741855 (Version 3)
Quarter: 2013Q4

REPORT INFORMATION
  Report Type: Report from Study
  Country: CZ (occurrence: CZ)
  Receive Date: 20131210
  Receipt Date: 20131221
  Transmission Date: 20140711
  Serious: Yes (Death)
  Sender: FDA-Public Use
  Company Number: PHHY2013CZ142492

PATIENT
  Sex: Male

DRUGS (2)
  1. IMATINIB [Suspect]
     Dosage: UNK UKN, UNK
     Dates: start: 20010327, end: 20050901
  2. DASATINIB [Suspect]
     Dosage: UNK UKN, UNK

REACTIONS (4)
  - Cardiopulmonary failure [Fatal]
  - Peripheral vascular disorder [Fatal]
  - Myocardial infarction [Fatal]
  - Cardiac failure [Fatal]
